FAERS Safety Report 8419779-7 (Version None)
Quarter: 2012Q2

REPORT INFORMATION
  Report Type: 
  Country: None (occurrence: None)
  Receive Date: 20120607
  Receipt Date: 20120530
  Transmission Date: 20120825
  Serious: Yes (Other)
  Sender: FDA-Public Use
  Company Number: CH-ABBOTT-12P-151-0912580-00

PATIENT
  Age: 39 Year
  Sex: Female
  Weight: 90 kg

DRUGS (6)
  1. KENACORT-A OPHTHALMIC OINTMENT [Interacting]
     Indication: BACK PAIN
     Dosage: ONE SINGLE ADMINISTRATION
     Route: 030
     Dates: start: 20120110, end: 20120110
  2. CALCIMAGON-D3 [Concomitant]
     Indication: OSTEOPOROSIS
  3. NORVIR [Interacting]
     Indication: HIV INFECTION
     Route: 048
     Dates: start: 20110101, end: 20120215
  4. PREZISTA [Suspect]
     Indication: HIV INFECTION
     Route: 048
     Dates: start: 20110101, end: 20120215
  5. TRUVADA [Suspect]
     Indication: HIV INFECTION
     Route: 048
     Dates: start: 20110101, end: 20120215
  6. RASILEZ [Concomitant]
     Indication: HYPERTENSIVE HEART DISEASE
     Route: 048

REACTIONS (7)
  - BLOOD CORTISOL DECREASED [None]
  - DIABETES MELLITUS [None]
  - HYPERTENSION [None]
  - DRUG INTERACTION [None]
  - HYPERGLYCAEMIA [None]
  - CUSHINGOID [None]
  - CUSHING'S SYNDROME [None]
